FAERS Safety Report 5890307-3 (Version None)
Quarter: 2008Q3

REPORT INFORMATION
  Report Type: 
  Country: None (occurrence: None)
  Receive Date: 20080918
  Receipt Date: 20080910
  Transmission Date: 20090109
  Serious: Yes (Death)
  Sender: FDA-Public Use
  Company Number: US024592

PATIENT
  Age: 48 Year
  Sex: Male
  Weight: 47.1741 kg

DRUGS (5)
  1. FENTORA [Suspect]
     Indication: BREAKTHROUGH PAIN
     Dosage: 100 UG BUCCAL
     Route: 002
     Dates: start: 20080101, end: 20080803
  2. FENTORA [Suspect]
     Indication: CANCER PAIN
     Dosage: 100 UG BUCCAL
     Route: 002
     Dates: start: 20080101, end: 20080803
  3. ACTIQ [Concomitant]
  4. MORPHINE [Concomitant]
  5. CHEMOTHERAPY [Concomitant]

REACTIONS (2)
  - DRUG PRESCRIBING ERROR [None]
  - RENAL CELL CARCINOMA [None]
